FAERS Safety Report 8159149 (Version 2)
Quarter: 2015Q2

REPORT INFORMATION
  Report Type: Spontaneous
  Country: US (occurrence: US)
  Receive Date: 20110927
  Receipt Date: 20150520
  Transmission Date: 20150821
  Serious: Yes (Congenital Anomaly)
  Sender: FDA-Public Use
  Company Number: US-ELI_LILLY_AND_COMPANY-US201109004110

PATIENT

DRUGS (4)
  1. PRENATAL VITAMINS                  /08195401/ [Concomitant]
     Route: 064
  2. CELEXA [Concomitant]
     Active Substance: CITALOPRAM HYDROBROMIDE
     Indication: DEPRESSION
     Route: 064
  3. PROZAC [Suspect]
     Active Substance: FLUOXETINE HYDROCHLORIDE
     Indication: DEPRESSION
     Dosage: 20 MG, UNKNOWN
     Route: 064
  4. ACYCLOVIR ABBOTT VIAL [Concomitant]
     Route: 064

REACTIONS (12)
  - Tethered cord syndrome [Unknown]
  - Limb reduction defect [Unknown]
  - Rib deformity [Unknown]
  - Foetal exposure during pregnancy [Recovered/Resolved]
  - Spine malformation [Unknown]
  - Sacral hypoplasia [Unknown]
  - Patent ductus arteriosus [Unknown]
  - Foetal growth restriction [Unknown]
  - Anal atresia [Unknown]
  - VACTERL syndrome [Unknown]
  - Talipes [Unknown]
  - Ectopic kidney [Unknown]
